FAERS Safety Report 5671726-7 (Version None)
Quarter: 2008Q2

REPORT INFORMATION
  Report Type: 
  Country: None (occurrence: None)
  Receive Date: 20080229
  Receipt Date: 20071129
  Transmission Date: 20081010
  Serious: Yes (Other)
  Sender: FDA-Public Use
  Company Number: PHEH2007US10643

PATIENT
  Age: 57 Year
  Sex: Female

DRUGS (2)
  1. EXJADE [Suspect]
     Indication: IRON OVERLOAD
     Dosage: 1500 MG, QD, ORAL; 500 MG, QD, ORAL
     Route: 048
     Dates: start: 20070416, end: 20070808
  2. EXJADE [Suspect]
     Indication: IRON OVERLOAD
     Dosage: 1500 MG, QD, ORAL; 500 MG, QD, ORAL
     Route: 048
     Dates: start: 20070808, end: 20070901

REACTIONS (4)
  - BLOOD CREATININE INCREASED [None]
  - DIZZINESS [None]
  - HYPOACUSIS [None]
  - VISION BLURRED [None]
